FAERS Safety Report 4521101-3 (Version None)
Quarter: 2004Q4

REPORT INFORMATION
  Report Type: 
  Country: None (occurrence: None)
  Receive Date: 20041203
  Receipt Date: 20041118
  Transmission Date: 20050328
  Serious: Yes (Death, Hospitalization)
  Sender: FDA-Public Use
  Company Number: 2003-BP-06939NB

PATIENT
  Age: 83 Year
  Sex: Male

DRUGS (4)
  1. MOBIC [Suspect]
     Indication: RHEUMATOID ARTHRITIS
     Dosage: 10 MG
     Route: 048
     Dates: start: 20030217, end: 20030325
  2. MUCOSTA (REBAMIPIDE) [Concomitant]
  3. PREDNISOLONE [Concomitant]
  4. ARTZ (HYALURONATE SODIUM) [Concomitant]

REACTIONS (7)
  - CONDITION AGGRAVATED [None]
  - DISSEMINATED INTRAVASCULAR COAGULATION [None]
  - GASTRIC ULCER [None]
  - GASTROINTESTINAL HAEMORRHAGE [None]
  - HAEMODIALYSIS [None]
  - RECTAL ULCER [None]
  - RENAL FAILURE [None]
